FAERS Safety Report 21547850 (Version 2)
Quarter: 2022Q4

REPORT INFORMATION
  Report Type: Spontaneous
  Country: AU (occurrence: AU)
  Receive Date: 20221103
  Receipt Date: 20221110
  Transmission Date: 20230113
  Serious: Yes (Hospitalization, Other)
  Sender: FDA-Public Use
  Company Number: AU-GILEAD-2022-0603724

PATIENT
  Age: 57 Year
  Sex: Female

DRUGS (2)
  1. TRODELVY [Suspect]
     Active Substance: SACITUZUMAB GOVITECAN-HZIY
     Indication: Triple negative breast cancer
     Dosage: UNK C1D1, COMPLETED CYCLE 1
     Route: 065
     Dates: start: 20220819
  2. GRANULOCYTE COLONY-STIMULATING FACTOR NOS [Concomitant]
     Active Substance: GRANULOCYTE COLONY-STIMULATING FACTOR NOS
     Dosage: UNK, ON C1D2
     Dates: start: 202208

REACTIONS (7)
  - Pneumonitis [Recovered/Resolved]
  - Escherichia bacteraemia [Unknown]
  - Pathological fracture [Unknown]
  - Pleural effusion [Unknown]
  - Colitis [Recovering/Resolving]
  - Hypotension [Unknown]
  - Fall [Unknown]

NARRATIVE: CASE EVENT DATE: 20220830
